FAERS Safety Report 25167879 (Version 1)
Quarter: 2025Q2

REPORT INFORMATION
  Report Type: Report from Study
  Country: US (occurrence: US)
  Receive Date: 20250407
  Receipt Date: 20250407
  Transmission Date: 20250717
  Serious: Yes (Hospitalization, Other)
  Sender: ACADIA PHARMACEUTICALS
  Company Number: US-ACADIA PHARMACEUTICALS INC.-ACA-2025-TRF-003754

PATIENT
  Sex: Female

DRUGS (2)
  1. DAYBUE [Suspect]
     Active Substance: TROFINETIDE
     Indication: Rett syndrome
     Dosage: 40 MILLILITER, BID
     Route: 048
     Dates: start: 2023
  2. DAYBUE [Suspect]
     Active Substance: TROFINETIDE
     Dosage: 20 MILLILITER, BID
     Route: 048

REACTIONS (9)
  - Acute kidney injury [Unknown]
  - Hospitalisation [Unknown]
  - Limb injury [Unknown]
  - Fear [Unknown]
  - Underdose [Unknown]
  - Therapy interrupted [Unknown]
  - Product use complaint [Unknown]
  - Product preparation issue [Unknown]
  - Product prescribing issue [Unknown]
